FAERS Safety Report 17846565 (Version 1)
Quarter: 2020Q2

REPORT INFORMATION
  Report Type: Spontaneous
  Country: US (occurrence: US)
  Receive Date: 20200601
  Receipt Date: 20200601
  Transmission Date: 20200714
  Serious: No
  Sender: FDA-Public Use
  Company Number: None

PATIENT
  Age: 71 Year
  Sex: Female

DRUGS (11)
  1. DULOXETINE 60MG [Concomitant]
     Active Substance: DULOXETINE
  2. SEREVENT DISKUS [Suspect]
     Active Substance: SALMETEROL XINAFOATE
     Indication: CHRONIC OBSTRUCTIVE PULMONARY DISEASE
     Route: 048
  3. TOPIRAMATE 200MG [Concomitant]
     Active Substance: TOPIRAMATE
  4. LEVOTHYROXINE 100MCG [Concomitant]
     Active Substance: LEVOTHYROXINE
  5. OMEPRAZOLE 40MG [Concomitant]
     Active Substance: OMEPRAZOLE
  6. LEUCOVORIN 5MG [Concomitant]
     Active Substance: LEUCOVORIN
  7. METHOTREXATE 2.5MG [Concomitant]
     Active Substance: METHOTREXATE
  8. SPIRIVA [Concomitant]
     Active Substance: TIOTROPIUM BROMIDE MONOHYDRATE
  9. TRAZODONE [Concomitant]
     Active Substance: TRAZODONE HYDROCHLORIDE
  10. LISINOPRIL. [Concomitant]
     Active Substance: LISINOPRIL
  11. HYDROCODONE/ACETAMINOPHEN 5-325MG [Concomitant]

REACTIONS (5)
  - Therapeutic product effect decreased [None]
  - Product quality issue [None]
  - Device defective [None]
  - Chronic obstructive pulmonary disease [None]
  - Disease progression [None]

NARRATIVE: CASE EVENT DATE: 20200601
